FAERS Safety Report 15044191 (Version 1)
Quarter: 2018Q2

REPORT INFORMATION
  Report Type: Spontaneous
  Country: BE (occurrence: BE)
  Receive Date: 20180621
  Receipt Date: 20180621
  Transmission Date: 20180711
  Serious: Yes (Other)
  Sender: FDA-Public Use
  Company Number: BE-MYLANLABS-2018M1041570

PATIENT
  Age: 10 Year
  Sex: Female
  Weight: 23 kg

DRUGS (1)
  1. AZITHROMYCIN ANHYDROUS. [Suspect]
     Active Substance: AZITHROMYCIN ANHYDROUS
     Indication: PRODUCT USED FOR UNKNOWN INDICATION
     Dosage: 1 DF, TOTAL
     Route: 048

REACTIONS (2)
  - Abdominal pain upper [Unknown]
  - Pallor [Unknown]
